FAERS Safety Report 8820640 (Version 2)
Quarter: 2013Q1

REPORT INFORMATION
  Report Type: Spontaneous
  Country: IT (occurrence: IT)
  Receive Date: 20121002
  Receipt Date: 20130214
  Transmission Date: 20140127
  Serious: Yes (Other)
  Sender: FDA-Public Use
  Company Number: IT-JNJFOC-20120912962

PATIENT
  Age: 73 Year
  Sex: Female
  Weight: 70 kg

DRUGS (4)
  1. TRAMADOL HYDROCHLORIDE [Suspect]
     Indication: VASCULITIS
     Route: 048
     Dates: start: 20110506, end: 20120905
  2. CORTICOSTEROID NOS [Concomitant]
     Route: 065
  3. IMMUNOSUPPRESSANTS [Concomitant]
     Route: 065
  4. HYDROMORPHONE HYDROCHLORIDE [Concomitant]
     Indication: RHEUMATOID ARTHRITIS
     Route: 048
     Dates: start: 20111209, end: 20120905

REACTIONS (4)
  - Rash [Recovering/Resolving]
  - Hyperhidrosis [Recovering/Resolving]
  - Vomiting [Recovering/Resolving]
  - Vertigo [Recovering/Resolving]
